FAERS Safety Report 11857172 (Version 2)
Quarter: 2016Q4

REPORT INFORMATION
  Report Type: Spontaneous
  Country: US (occurrence: US)
  Receive Date: 20151221
  Receipt Date: 20161228
  Transmission Date: 20170206
  Serious: Yes (Hospitalization)
  Sender: FDA-Public Use
  Company Number: US-TURING PHARMACEUTICALS-2015TNG00070

PATIENT
  Age: 45 Year
  Sex: Female

DRUGS (2)
  1. DARAPRIM [Suspect]
     Active Substance: PYRIMETHAMINE
     Dosage: 50 MG, 1X/DAY
     Route: 048
     Dates: start: 20150620
  2. DARAPRIM [Suspect]
     Active Substance: PYRIMETHAMINE
     Indication: TOXOPLASMOSIS
     Dosage: 75 MG, 1X/DAY
     Route: 048
     Dates: start: 201507

REACTIONS (4)
  - Thrombosis [Unknown]
  - Hysterectomy [Unknown]
  - Myocardial infarction [Unknown]
  - Postoperative thrombosis [None]

NARRATIVE: CASE EVENT DATE: 2015
